FAERS Safety Report 12572028 (Version 1)
Quarter: 2016Q3

REPORT INFORMATION
  Report Type: Spontaneous
  Country: KR (occurrence: KR)
  Receive Date: 20160719
  Receipt Date: 20160719
  Transmission Date: 20161109
  Serious: Yes (Life-Threatening, Other)
  Sender: FDA-Public Use
  Company Number: KR-IMPAX LABORATORIES, INC-2016-IPXL-00757

PATIENT
  Age: 82 Year
  Sex: Female

DRUGS (1)
  1. POTASSIUM CITRATE ER 15 MEQ, 15 MEQ [Suspect]
     Active Substance: POTASSIUM CITRATE
     Indication: CALCULUS URINARY
     Dosage: 5 G, QID; 120 MMOL OF K/DAY
     Route: 065

REACTIONS (3)
  - Hyperkalaemia [Recovered/Resolved]
  - Bundle branch block right [Recovered/Resolved]
  - Arrhythmia [Recovered/Resolved]
